FAERS Safety Report 10105421 (Version 2)
Quarter: 2014Q3

REPORT INFORMATION
  Report Type: Other
  Country: US (occurrence: US)
  Receive Date: 20140424
  Receipt Date: 20140718
  Transmission Date: 20150326
  Serious: Yes (Hospitalization, Other)
  Sender: FDA-Public Use
  Company Number: US-GSKPPD-2014GSK001113

PATIENT
  Age: 47 Year
  Sex: Female

DRUGS (4)
  1. AVANDIA [Suspect]
     Active Substance: ROSIGLITAZONE MALEATE
     Indication: DIABETES MELLITUS
     Route: 048
     Dates: start: 20040525, end: 20080630
  2. ASPIRIN. [Concomitant]
     Active Substance: ASPIRIN
     Route: 048
  3. NITRO-DUR [Concomitant]
     Active Substance: NITROGLYCERIN
  4. LASIX [Concomitant]
     Active Substance: FUROSEMIDE
     Route: 048

REACTIONS (5)
  - Cerebrovascular accident [Recovered/Resolved]
  - Hemiplegia [Recovered/Resolved]
  - Catheterisation cardiac [None]
  - Cerebrovascular accident [None]
  - Myocardial infarction [Recovered/Resolved]

NARRATIVE: CASE EVENT DATE: 20080726
